FAERS Safety Report 5804359-X (Version None)
Quarter: 2008Q3

REPORT INFORMATION
  Report Type: 
  Country: None (occurrence: None)
  Receive Date: 20080709
  Receipt Date: 20080319
  Transmission Date: 20090109
  Serious: No
  Sender: FDA-Public Use
  Company Number: US-BAYER-200817765NA

PATIENT
  Age: 27 Year
  Sex: Female
  Weight: 50 kg

DRUGS (3)
  1. MIRENA [Suspect]
     Indication: CONTRACEPTION
     Route: 015
  2. ASACOL [Concomitant]
     Indication: COLITIS ULCERATIVE
  3. VITAMIN TAB [Concomitant]

REACTIONS (6)
  - ABDOMINAL PAIN LOWER [None]
  - AMENORRHOEA [None]
  - BACK PAIN [None]
  - IUCD COMPLICATION [None]
  - PAIN IN EXTREMITY [None]
  - PROCEDURAL PAIN [None]
